FAERS Safety Report 7902023-4 (Version None)
Quarter: 2011Q4

REPORT INFORMATION
  Report Type: 
  Country: None (occurrence: None)
  Receive Date: 20111108
  Receipt Date: 20111028
  Transmission Date: 20120403
  Serious: Yes (Hospitalization, Congenital Anomaly)
  Sender: FDA-Public Use
  Company Number: US-GLAXOSMITHKLINE-A0950537A

PATIENT
  Sex: Female

DRUGS (6)
  1. VITAMIN AND MINERAL PRENATAL SUPPLEMENT W/ FOLIC ACID CAP [Concomitant]
     Route: 064
  2. PAXIL [Suspect]
     Indication: ANXIETY
     Dosage: 20MG UNKNOWN
     Route: 064
  3. TOBACCO [Concomitant]
     Route: 064
  4. PAROXETINE HCL [Suspect]
     Indication: ANXIETY
     Dosage: 20MG UNKNOWN
     Route: 064
  5. ZOLOFT [Concomitant]
     Indication: ANXIETY
     Route: 064
  6. FIORICET [Concomitant]
     Route: 064

REACTIONS (7)
  - COARCTATION OF THE AORTA [None]
  - PATENT DUCTUS ARTERIOSUS [None]
  - VENTRICULAR SEPTAL DEFECT [None]
  - FOETAL EXPOSURE DURING PREGNANCY [None]
  - TALIPES [None]
  - RIB HYPOPLASIA [None]
  - ATRIAL SEPTAL DEFECT [None]
